FAERS Safety Report 17857582 (Version 1)
Quarter: 2020Q2

REPORT INFORMATION
  Report Type: Spontaneous
  Country: CN (occurrence: CN)
  Receive Date: 20200604
  Receipt Date: 20200604
  Transmission Date: 20200714
  Serious: Yes (Hospitalization, Other)
  Sender: FDA-Public Use
  Company Number: CN-GILEAD-2020-0469637

PATIENT
  Sex: Male

DRUGS (6)
  1. ZOLOFT [Concomitant]
     Active Substance: SERTRALINE HYDROCHLORIDE
  2. HEPTODIN [Suspect]
     Active Substance: LAMIVUDINE
     Indication: HEPATITIS B
     Dosage: 1 DOSAGE FORM, QD
     Route: 048
     Dates: start: 2000, end: 200507
  3. DIAZEPAM. [Concomitant]
     Active Substance: DIAZEPAM
  4. VITAMIN D NOS [Concomitant]
     Active Substance: VITAMIN D NOS
  5. VIREAD [Suspect]
     Active Substance: TENOFOVIR DISOPROXIL FUMARATE
     Indication: HEPATITIS B
     Dosage: UNK
     Route: 048
     Dates: start: 2020
  6. HEPSERA [Suspect]
     Active Substance: ADEFOVIR DIPIVOXIL
     Indication: PRODUCT USED FOR UNKNOWN INDICATION
     Dosage: 1 DOSAGE FORM, QD
     Route: 048
     Dates: start: 2005, end: 2020

REACTIONS (11)
  - Hepatic cirrhosis [Recovering/Resolving]
  - Hypertension [Not Recovered/Not Resolved]
  - Eczema [Recovered/Resolved]
  - Hepatitis B surface antigen positive [Recovered/Resolved]
  - Anxiety [Unknown]
  - Lacunar infarction [Not Recovered/Not Resolved]
  - Hepatitis B antibody positive [Recovered/Resolved]
  - Hepatitis B core antibody positive [Recovered/Resolved]
  - Spinal pain [Recovering/Resolving]
  - Product dose omission [Unknown]
  - Viral mutation identified [Unknown]

NARRATIVE: CASE EVENT DATE: 2005
